FAERS Safety Report 10477549 (Version 2)
Quarter: 2015Q4

REPORT INFORMATION
  Report Type: Report from Study
  Country: US (occurrence: US)
  Receive Date: 20140926
  Receipt Date: 20151028
  Transmission Date: 20160304
  Serious: Yes (Hospitalization)
  Sender: FDA-Public Use
  Company Number: PHHO2014US012710

PATIENT
  Age: 73 Year

DRUGS (2)
  1. GEMCITABINE [Suspect]
     Active Substance: GEMCITABINE\GEMCITABINE HYDROCHLORIDE
     Indication: PANCREATIC CARCINOMA METASTATIC
     Route: 042
  2. SOM230 [Suspect]
     Active Substance: PASIREOTIDE
     Indication: PANCREATIC CARCINOMA METASTATIC
     Route: 030

REACTIONS (1)
  - Hyperbilirubinaemia [Recovered/Resolved]

NARRATIVE: CASE EVENT DATE: 20111218
